FAERS Safety Report 6404977-4 (Version None)
Quarter: 2009Q4

REPORT INFORMATION
  Report Type: 
  Country: None (occurrence: None)
  Receive Date: 20091019
  Receipt Date: 20091007
  Transmission Date: 20100525
  Serious: Yes (Hospitalization)
  Sender: FDA-Public Use
  Company Number: US-PFIZER INC-2009263548

PATIENT
  Sex: Female
  Weight: 67 kg

DRUGS (2)
  1. SUNITINIB MALATE [Suspect]
     Indication: SARCOMATOSIS
     Dosage: 50 MG, 1X/DAY FOR 28 DAYS
     Route: 048
     Dates: start: 20071003
  2. PRILOSEC [Concomitant]
     Dosage: 20.6 MG, QD, AS NEEDED
     Route: 048

REACTIONS (1)
  - MYOCARDIAL INFARCTION [None]
